FAERS Safety Report 4519831-2 (Version None)
Quarter: 2004Q4

REPORT INFORMATION
  Report Type: 
  Country: None (occurrence: None)
  Receive Date: 20041201
  Receipt Date: 20041201
  Transmission Date: 20050328
  Serious: No
  Sender: FDA-Public Use
  Company Number: None

PATIENT
  Age: 58 Year
  Sex: Male
  Weight: 103.5 kg

DRUGS (19)
  1. WARFARIN SODIUM [Suspect]
     Indication: CARDIAC FAILURE CONGESTIVE
     Dosage: VARIE, VARIOUS, ORAL
     Route: 048
  2. SIMVASTATIN [Concomitant]
  3. SYNTHROID [Concomitant]
  4. OMEPRAZOLE [Concomitant]
  5. FUROSEMIDE [Concomitant]
  6. LISINOPRIL [Concomitant]
  7. SPIRONOLACTONE [Concomitant]
  8. COUMADIN [Concomitant]
  9. SENNOSIDES [Concomitant]
  10. NITROGLYCERIN [Concomitant]
  11. ACCU-CHEK COMFORT CV (GLUCOSE) TEST STRIP [Concomitant]
  12. ARTIFICIAL TEARS POLYVINYL ALCOHOL [Concomitant]
  13. DOCUSATE [Concomitant]
  14. LANCET, SOFT TOUCH [Concomitant]
  15. SODIUM CHLORIDE [Concomitant]
  16. AMITRIPTYLINE HCL [Concomitant]
  17. MOISTURIZING LOTION [Concomitant]
  18. FINASTERIDE [Concomitant]
  19. TRETINOIN [Concomitant]

REACTIONS (1)
  - DRUG LEVEL ABOVE THERAPEUTIC [None]
